FAERS Safety Report 20448708 (Version 1)
Quarter: 2022Q1

REPORT INFORMATION
  Report Type: Spontaneous
  Country: PT (occurrence: PT)
  Receive Date: 20220209
  Receipt Date: 20220209
  Transmission Date: 20220424
  Serious: Yes (Life-Threatening, Hospitalization, Disabling, Other)
  Sender: FDA-Public Use
  Company Number: None

PATIENT
  Age: 71 Year
  Sex: Male

DRUGS (3)
  1. TACROLIMUS [Interacting]
     Active Substance: TACROLIMUS
     Indication: Liver transplant
     Route: 065
     Dates: start: 2017
  2. CLARITHROMYCIN [Interacting]
     Active Substance: CLARITHROMYCIN
     Indication: Respiratory tract infection
     Route: 065
  3. MYCOPHENOLATE MOFETIL [Concomitant]
     Active Substance: MYCOPHENOLATE MOFETIL
     Indication: Liver transplant
     Route: 065
     Dates: start: 2017

REACTIONS (13)
  - Altered state of consciousness [Recovered/Resolved]
  - Myoclonus [Recovering/Resolving]
  - Nephropathy toxic [Recovering/Resolving]
  - Blood creatinine increased [Recovered/Resolved]
  - Drug interaction [Unknown]
  - Mechanical ventilation [Recovered/Resolved]
  - Acute kidney injury [Recovering/Resolving]
  - Hyperkalaemia [Recovered/Resolved]
  - Toxicity to various agents [Unknown]
  - Dyspnoea exertional [Unknown]
  - Neurotoxicity [Recovering/Resolving]
  - Metabolic acidosis [Recovered/Resolved]
  - Respiratory tract infection [Unknown]
